FAERS Safety Report 4854593-0 (Version None)
Quarter: 2005Q4

REPORT INFORMATION
  Report Type: 
  Country: None (occurrence: None)
  Receive Date: 20051213
  Receipt Date: 20051202
  Transmission Date: 20060501
  Serious: Yes (Hospitalization)
  Sender: FDA-Public Use
  Company Number: 2005-132512-NL

PATIENT
  Age: 70 Year
  Sex: Female

DRUGS (10)
  1. MIRTAZAPINE [Suspect]
     Dosage: ORAL
     Route: 048
  2. TELMISARTAN [Concomitant]
  3. VERAPAMIL HYDROCHLORIDE [Concomitant]
  4. IMIPRAMINE HCL [Concomitant]
  5. RABEPRAZOLE SODIUM [Concomitant]
  6. OXAZEPAM [Concomitant]
  7. VENLAFAXINE HCL [Concomitant]
  8. MIRTAZAPINE [Concomitant]
  9. VERAPAMIL HYDROCHLORIDE [Concomitant]
  10. NORTRIPTYLINE HCL [Concomitant]

REACTIONS (3)
  - BIPOLAR I DISORDER [None]
  - OFF LABEL USE [None]
  - OVERDOSE [None]
